FAERS Safety Report 19103907 (Version 3)
Quarter: 2021Q2

REPORT INFORMATION
  Report Type: Report from Study
  Country: US (occurrence: US)
  Receive Date: 20210407
  Receipt Date: 20210424
  Transmission Date: 20210717
  Serious: Yes (Other)
  Sender: FDA-Public Use
  Company Number: US-TAKEDA-2021TUS020673

PATIENT
  Age: 68 Year
  Sex: Male
  Weight: 75.74 kg

DRUGS (8)
  1. TEDUGLUTIDE [Suspect]
     Active Substance: TEDUGLUTIDE
     Indication: GASTROINTESTINAL STOMA COMPLICATION
     Dosage: 3.765 MILLIGRAM, QD
     Route: 058
     Dates: start: 20210324, end: 20210327
  2. TEDUGLUTIDE [Suspect]
     Active Substance: TEDUGLUTIDE
     Indication: GASTROINTESTINAL STOMA COMPLICATION
     Dosage: 3.765 MILLIGRAM, QD
     Route: 058
     Dates: start: 20210324, end: 20210327
  3. TEDUGLUTIDE [Suspect]
     Active Substance: TEDUGLUTIDE
     Indication: GASTROINTESTINAL STOMA COMPLICATION
     Dosage: 3.765 MILLIGRAM, QD
     Route: 058
     Dates: start: 20210324, end: 20210327
  4. TEDUGLUTIDE [Suspect]
     Active Substance: TEDUGLUTIDE
     Indication: SHORT-BOWEL SYNDROME
     Dosage: 3.8 MILLIGRAM, QD
     Route: 058
     Dates: start: 20210324
  5. TEDUGLUTIDE [Suspect]
     Active Substance: TEDUGLUTIDE
     Indication: SHORT-BOWEL SYNDROME
     Dosage: 3.8 MILLIGRAM, QD
     Route: 058
     Dates: start: 20210324
  6. TEDUGLUTIDE [Suspect]
     Active Substance: TEDUGLUTIDE
     Indication: SHORT-BOWEL SYNDROME
     Dosage: 3.8 MILLIGRAM, QD
     Route: 058
     Dates: start: 20210324
  7. TEDUGLUTIDE [Suspect]
     Active Substance: TEDUGLUTIDE
     Indication: SHORT-BOWEL SYNDROME
     Dosage: 3.8 MILLIGRAM, QD
     Route: 058
     Dates: start: 20210324
  8. TEDUGLUTIDE [Suspect]
     Active Substance: TEDUGLUTIDE
     Indication: GASTROINTESTINAL STOMA COMPLICATION
     Dosage: 3.765 MILLIGRAM, QD
     Route: 058
     Dates: start: 20210324, end: 20210327

REACTIONS (3)
  - Stoma complication [Recovered/Resolved]
  - Abdominal distension [Unknown]
  - Stoma site haemorrhage [Unknown]

NARRATIVE: CASE EVENT DATE: 20210324
